FAERS Safety Report 6187361-0 (Version None)
Quarter: 2009Q2

REPORT INFORMATION
  Report Type: 
  Country: None (occurrence: None)
  Receive Date: 20090512
  Receipt Date: 20090504
  Transmission Date: 20091009
  Serious: Yes (Hospitalization)
  Sender: FDA-Public Use
  Company Number: A0782340A

PATIENT
  Age: 79 Year
  Sex: Female

DRUGS (4)
  1. ADVAIR HFA [Suspect]
     Indication: CHRONIC OBSTRUCTIVE PULMONARY DISEASE
     Dosage: 1PUFF TWICE PER DAY
     Route: 055
     Dates: start: 20090301, end: 20090424
  2. LASIX [Concomitant]
  3. OXYGEN [Concomitant]
  4. CONCURRENT MEDICATIONS [Concomitant]

REACTIONS (12)
  - ANOREXIA [None]
  - CANDIDIASIS [None]
  - CEREBROVASCULAR ACCIDENT [None]
  - CHEST PAIN [None]
  - DYSPHONIA [None]
  - HEART RATE INCREASED [None]
  - HEART RATE IRREGULAR [None]
  - MEDICATION ERROR [None]
  - MOVEMENT DISORDER [None]
  - ORAL PAIN [None]
  - OROPHARYNGEAL PAIN [None]
  - PNEUMONIA [None]
